FAERS Safety Report 25624292 (Version 1)
Quarter: 2025Q3

REPORT INFORMATION
  Report Type: Report from Study
  Country: EU (occurrence: EU)
  Receive Date: 20250730
  Receipt Date: 20250730
  Transmission Date: 20251020
  Serious: Yes (Other)
  Sender: PFIZER
  Company Number: EU-TAKEDA-2023TUS051416

PATIENT
  Age: 59 Year
  Sex: Female
  Weight: 69 kg

DRUGS (2)
  1. ADCETRIS [Suspect]
     Active Substance: BRENTUXIMAB VEDOTIN
     Indication: Cutaneous T-cell lymphoma
     Dosage: UNK UNK, Q3WEEKS
     Route: 042
     Dates: start: 20221219
  2. ADCETRIS [Suspect]
     Active Substance: BRENTUXIMAB VEDOTIN
     Dosage: UNK UNK, Q3WEEKS
     Route: 042

REACTIONS (2)
  - Wound infection staphylococcal [Recovered/Resolved]
  - Herpes dermatitis [Recovered/Resolved]

NARRATIVE: CASE EVENT DATE: 20230130
